FAERS Safety Report 23310348 (Version 1)
Quarter: 2023Q4

REPORT INFORMATION
  Report Type: Spontaneous
  Country: US (occurrence: None)
  Receive Date: 20231218
  Receipt Date: 20231218
  Transmission Date: 20240110
  Serious: Yes (Life-Threatening, Hospitalization)
  Sender: FDA-Public Use
  Company Number: None

PATIENT
  Age: 59 Year
  Sex: Female
  Weight: 62.9 kg

DRUGS (2)
  1. DEFERASIROX [Suspect]
     Active Substance: DEFERASIROX
     Indication: Iron overload
     Dosage: FREQUENCY : TWICE A DAY;?
     Route: 048
     Dates: start: 20230623, end: 20230927
  2. APIXABAN [Suspect]
     Active Substance: APIXABAN
     Dates: start: 20220323

REACTIONS (7)
  - Haematemesis [None]
  - Cardio-respiratory arrest [None]
  - Pulse absent [None]
  - Shock haemorrhagic [None]
  - Serum ferritin increased [None]
  - Helicobacter test positive [None]
  - Child-Pugh-Turcotte score increased [None]

NARRATIVE: CASE EVENT DATE: 20230927
